FAERS Safety Report 10142073 (Version 3)
Quarter: 2014Q2

REPORT INFORMATION
  Report Type: Spontaneous
  Country: DE (occurrence: DE)
  Receive Date: 20140429
  Receipt Date: 20140627
  Transmission Date: 20141212
  Serious: Yes (Other)
  Sender: FDA-Public Use
  Company Number: PHHY2014DE049852

PATIENT
  Sex: Male

DRUGS (1)
  1. FORADIL P [Suspect]
     Indication: CHRONIC OBSTRUCTIVE PULMONARY DISEASE
     Dosage: 1 DF, TID
     Dates: start: 1999

REACTIONS (6)
  - Cardiac ventricular thrombosis [Unknown]
  - Blood pressure fluctuation [Unknown]
  - Myocardial infarction [Unknown]
  - Incorrect dose administered [Unknown]
  - Dyspnoea [Unknown]
  - Overdose [Unknown]
